FAERS Safety Report 15251167 (Version 2)
Quarter: 2018Q3

REPORT INFORMATION
  Report Type: Spontaneous
  Country: US (occurrence: US)
  Receive Date: 20180807
  Receipt Date: 20180904
  Transmission Date: 20181010
  Serious: Yes (Hospitalization, Disabling, Other)
  Sender: FDA-Public Use
  Company Number: US-PURDUE PHARMA-GBR-2018-0057902

PATIENT
  Age: 20 Year
  Sex: Female

DRUGS (18)
  1. DEXAMETHASONE. [Concomitant]
     Active Substance: DEXAMETHASONE
     Indication: HISTIOCYTOSIS HAEMATOPHAGIC
     Route: 042
  2. FENTANYL. [Concomitant]
     Active Substance: FENTANYL
     Indication: PROCEDURAL PAIN
  3. HYDROMORPHONE HYDROCHLORIDE. [Suspect]
     Active Substance: HYDROMORPHONE HYDROCHLORIDE
     Dosage: 1 MG, SINGLE
     Route: 042
     Dates: start: 20170926, end: 20170926
  4. HYDROMORPHONE HYDROCHLORIDE. [Suspect]
     Active Substance: HYDROMORPHONE HYDROCHLORIDE
     Indication: POSTOPERATIVE ANALGESIA
     Dosage: 40 MG, DAILY
     Route: 048
     Dates: start: 20171003, end: 20171003
  5. MORPHINE [Suspect]
     Active Substance: MORPHINE
     Indication: ANALGESIC THERAPY
     Dosage: 6 MG, Q1H (2 MG Q20 MINUTES)
     Route: 042
     Dates: start: 20170916, end: 20170918
  6. BUPROPION. [Concomitant]
     Active Substance: BUPROPION
     Indication: DEPRESSION
     Route: 048
  7. HYDROMORPHONE HYDROCHLORIDE. [Suspect]
     Active Substance: HYDROMORPHONE HYDROCHLORIDE
     Dosage: 30 MG, DAILY
     Route: 048
     Dates: start: 20170930, end: 20170930
  8. HYDROMORPHONE HYDROCHLORIDE. [Suspect]
     Active Substance: HYDROMORPHONE HYDROCHLORIDE
     Dosage: 36 MG, DAILY
     Route: 048
     Dates: start: 20170929, end: 20170929
  9. HYDROMORPHONE HYDROCHLORIDE. [Suspect]
     Active Substance: HYDROMORPHONE HYDROCHLORIDE
     Dosage: 4 MG, DAILY
     Route: 048
     Dates: start: 20170926, end: 20170926
  10. MORPHINE [Suspect]
     Active Substance: MORPHINE
     Indication: ANALGESIC THERAPY
     Dosage: 4 MG DOSE (LIMITED TO 3 DOSES PER DAY)
     Route: 042
     Dates: start: 20170914, end: 20170915
  11. MORPHINE [Suspect]
     Active Substance: MORPHINE
     Indication: PROCEDURAL PAIN
     Dosage: 30 MG, Q12H
     Route: 048
     Dates: start: 20170915, end: 20170918
  12. IBUPROFEN. [Concomitant]
     Active Substance: IBUPROFEN
     Indication: PAIN
     Route: 048
  13. HYDROMORPHONE HYDROCHLORIDE. [Suspect]
     Active Substance: HYDROMORPHONE HYDROCHLORIDE
     Dosage: 25 MG, DAILY
     Route: 048
     Dates: start: 20170927, end: 20170927
  14. ETOPOSIDE. [Concomitant]
     Active Substance: ETOPOSIDE
     Indication: HISTIOCYTOSIS HAEMATOPHAGIC
     Route: 042
  15. HYDROMORPHONE HYDROCHLORIDE. [Suspect]
     Active Substance: HYDROMORPHONE HYDROCHLORIDE
     Dosage: 42 MG, DAILY
     Route: 048
     Dates: start: 20171002, end: 20171002
  16. HYDROMORPHONE HYDROCHLORIDE. [Suspect]
     Active Substance: HYDROMORPHONE HYDROCHLORIDE
     Dosage: 36 MG, DAILY
     Route: 048
     Dates: start: 20171001, end: 20171001
  17. HYDROMORPHONE HYDROCHLORIDE. [Suspect]
     Active Substance: HYDROMORPHONE HYDROCHLORIDE
     Dosage: 28 MG, DAILY
     Route: 048
     Dates: start: 20170928, end: 20170928
  18. MORPHINE [Suspect]
     Active Substance: MORPHINE
     Dosage: 15 MG, Q12H
     Route: 048
     Dates: start: 20170914

REACTIONS (8)
  - Delusion [Recovered/Resolved]
  - Tremor [Recovered/Resolved]
  - Myoclonus [Recovered/Resolved]
  - Hyperaesthesia [Recovered/Resolved]
  - Chorea [Recovered/Resolved]
  - Delirium [Recovered/Resolved]
  - Disorientation [Recovered/Resolved]
  - Hallucination, visual [Recovered/Resolved]

NARRATIVE: CASE EVENT DATE: 20170916
